FAERS Safety Report 4264870-2 (Version None)
Quarter: 2004Q1

REPORT INFORMATION
  Report Type: 
  Country: None (occurrence: None)
  Receive Date: 20040105
  Receipt Date: 20031224
  Transmission Date: 20041129
  Serious: Yes (Hospitalization)
  Sender: FDA-Public Use
  Company Number: 2003192188ES

PATIENT
  Age: 60 Year
  Sex: Female

DRUGS (10)
  1. DOXORUBICIN HYDROCHLORIDE [Suspect]
     Indication: BREAST CANCER
     Dosage: 68 MG, CYCLE 3, IV
     Route: 042
     Dates: start: 20031114, end: 20031114
  2. TAXOL [Suspect]
     Indication: BREAST CANCER
     Dosage: 225 MG, CYCLE 3, IV
     Route: 042
     Dates: start: 20031114, end: 20031114
  3. GEMCITABINE (GEMCITABINE) [Suspect]
     Indication: BREAST CANCER
     Dosage: 3400 MG, CYCLE 3, IV
     Route: 042
     Dates: start: 20031114, end: 20031114
  4. FILGRASTIM [Concomitant]
  5. DEXAMETHASONE [Concomitant]
  6. GRANISETRON (GRANISETRON) [Concomitant]
  7. PREDNISONE [Concomitant]
  8. ENALAPRIL MALEATE [Concomitant]
  9. OMEPRAZOLE [Concomitant]
  10. TEPAZEPAN [Concomitant]

REACTIONS (5)
  - ERYTHEMA [None]
  - OEDEMA [None]
  - PAIN IN EXTREMITY [None]
  - PHLEBITIS [None]
  - PYREXIA [None]
